FAERS Safety Report 11347998 (Version 1)
Quarter: 2015Q3

REPORT INFORMATION
  Report Type: Spontaneous
  Country: US (occurrence: US)
  Receive Date: 20150803
  Receipt Date: 20150803
  Transmission Date: 20151125
  Serious: No
  Sender: FDA-Public Use
  Company Number: US-ELI_LILLY_AND_COMPANY-US201108002121

PATIENT
  Age: 65 Year
  Sex: Female

DRUGS (9)
  1. TRILEPTAL [Concomitant]
     Active Substance: OXCARBAZEPINE
     Dosage: 450 MG, QD
  2. ZYPREXA [Suspect]
     Active Substance: OLANZAPINE
     Dosage: 20 MG, BID
  3. ZYPREXA [Suspect]
     Active Substance: OLANZAPINE
     Dosage: 10 MG, EACH EVENING
  4. LEXAPRO [Concomitant]
     Active Substance: ESCITALOPRAM OXALATE
     Dosage: 10 MG, QD
  5. ZYPREXA [Suspect]
     Active Substance: OLANZAPINE
     Dosage: 30 MG, QD
  6. ZYPREXA [Suspect]
     Active Substance: OLANZAPINE
     Indication: BIPOLAR I DISORDER
     Dosage: 20 MG, QD
  7. TRILEPTAL [Concomitant]
     Active Substance: OXCARBAZEPINE
     Dosage: 150 MG, QD
  8. ZYPREXA [Suspect]
     Active Substance: OLANZAPINE
     Dosage: 35 MG, QD
  9. ZYPREXA [Suspect]
     Active Substance: OLANZAPINE
     Dosage: 25 MG, QD

REACTIONS (7)
  - Insomnia [Recovered/Resolved]
  - Psychiatric decompensation [Unknown]
  - Weight increased [Unknown]
  - Prescribed overdose [Recovered/Resolved]
  - Intentional product misuse [Unknown]
  - Anxiety [Unknown]
  - Akathisia [Recovered/Resolved]

NARRATIVE: CASE EVENT DATE: 201106
